FAERS Safety Report 7962555-X (Version None)
Quarter: 2011Q4

REPORT INFORMATION
  Report Type: 
  Country: None (occurrence: None)
  Receive Date: 20111207
  Receipt Date: 20111130
  Transmission Date: 20120403
  Serious: Yes (Hospitalization)
  Sender: FDA-Public Use
  Company Number: IT-GLAXOSMITHKLINE-B0767555A

PATIENT
  Sex: Female

DRUGS (5)
  1. ATORVASTATIN CALCIUM [Concomitant]
     Dosage: 10MG PER DAY
     Route: 048
     Dates: start: 20111030
  2. LORAZEPAM [Concomitant]
     Dosage: 2.5MG PER DAY
     Route: 048
     Dates: start: 20111030
  3. LAMICTAL [Suspect]
     Indication: PRODUCT USED FOR UNKNOWN INDICATION
     Route: 048
     Dates: start: 20111030, end: 20111103
  4. EFFEXOR [Concomitant]
     Route: 048
     Dates: start: 20111030
  5. SEROQUEL [Concomitant]
     Dosage: 100MG PER DAY
     Dates: start: 20111030

REACTIONS (1)
  - PRURIGO [None]
